FAERS Safety Report 16759291 (Version 1)
Quarter: 2019Q3

REPORT INFORMATION
  Report Type: Spontaneous
  Country: US (occurrence: US)
  Receive Date: 20190830
  Receipt Date: 20190830
  Transmission Date: 20191005
  Serious: Yes (Other)
  Sender: FDA-Public Use
  Company Number: US-TORRENT-00009130

PATIENT
  Sex: Female

DRUGS (2)
  1. LAMOTRIGINE. [Suspect]
     Active Substance: LAMOTRIGINE
     Indication: PRODUCT USED FOR UNKNOWN INDICATION
     Dosage: STRENGTH: 100 MG?SCRIPPS PHARMACY SWITCHED TO LAMOTRIGINE 100 MG FROM TARO MANUFACTURER
     Route: 048
     Dates: start: 20190611
  2. LAMOTRIGINE. [Suspect]
     Active Substance: LAMOTRIGINE
     Indication: PRODUCT USED FOR UNKNOWN INDICATION
     Dosage: STRENGTH: 25 MG ?FIRST TIME SCRIPPS PHARMACY FILL THE PRESCRIPTION WAS ON 04-MAR-19
     Route: 048
     Dates: start: 20190304

REACTIONS (1)
  - Contusion [Not Recovered/Not Resolved]

NARRATIVE: CASE EVENT DATE: 201903
